FAERS Safety Report 5045254-6 (Version None)
Quarter: 2006Q2

REPORT INFORMATION
  Report Type: 
  Country: None (occurrence: None)
  Receive Date: 20060601
  Receipt Date: 20060405
  Transmission Date: 20061013
  Serious: No
  Sender: FDA-Public Use
  Company Number: 2006-BP-03849BP

PATIENT
  Age: 84 Year
  Sex: Female

DRUGS (14)
  1. SPIRIVA [Suspect]
     Indication: ASTHMA
     Dosage: 18 MCG (18 MCG, 1 IN 1 D), IH
     Route: 055
     Dates: start: 20060314
  2. SPIRIVA [Suspect]
  3. XOLOTEN (ALL OTHER THERAPEUTIC PRODUCTS) [Concomitant]
  4. FLOVENT [Concomitant]
  5. ECONOPRED (PREDNISOLONE ACETATE) [Concomitant]
  6. COSOPT (COSOPT /01419801/) [Concomitant]
  7. MURINE (MURINE /00509901/) [Concomitant]
  8. LASIX [Concomitant]
  9. ALDACTONE [Concomitant]
  10. OCCUVITE (OCUVITE /01053801/) [Concomitant]
  11. LOVASTATIN [Concomitant]
  12. ASPIRIN [Concomitant]
  13. SINGULAIR [Concomitant]
  14. INSULIN [Concomitant]

REACTIONS (4)
  - COUGH [None]
  - PYREXIA [None]
  - RHINORRHOEA [None]
  - SEASONAL ALLERGY [None]
